FAERS Safety Report 16456228 (Version 1)
Quarter: 2019Q2

REPORT INFORMATION
  Report Type: Spontaneous
  Country: US (occurrence: US)
  Receive Date: 20190509
  Receipt Date: 20190509
  Transmission Date: 20190711
  Serious: Yes (Hospitalization, Other)
  Sender: FDA-Public Use
  Company Number: None

PATIENT
  Age: 71 Year
  Sex: Male
  Weight: 62 kg

DRUGS (2)
  1. NANOLIPOSOMAL IRINOTECAN 132.4 MG [Suspect]
     Active Substance: IRINOTECAN
     Indication: GLIOBLASTOMA
     Dosage: ?          OTHER STRENGTH:132.4 MG;OTHER DOSE:70 MG/M2, 132.4;OTHER FREQUENCY:EVERY 2 WEEKS;?
     Route: 042
     Dates: start: 20190412, end: 20190424
  2. TEMOZALOMIDE 100 MG [Suspect]
     Active Substance: TEMOZOLOMIDE
     Indication: GLIOBLASTOMA
     Dosage: ?          OTHER DOSE:50 MG/M2; 100 MG;?
     Route: 048
     Dates: start: 20190412

REACTIONS (1)
  - Febrile neutropenia [None]

NARRATIVE: CASE EVENT DATE: 20190503
